FAERS Safety Report 11215672 (Version 2)
Quarter: 2015Q3

REPORT INFORMATION
  Report Type: Report from Study
  Country: NO (occurrence: NO)
  Receive Date: 20150624
  Receipt Date: 20150717
  Transmission Date: 20151125
  Serious: Yes (Life-Threatening, Hospitalization)
  Sender: FDA-Public Use
  Company Number: NO-SA-2015SA085494

PATIENT
  Age: 82 Year
  Sex: Male

DRUGS (8)
  1. MABCAMPATH [Suspect]
     Active Substance: ALEMTUZUMAB
     Indication: PROLYMPHOCYTIC LEUKAEMIA
     Route: 042
     Dates: start: 20150417, end: 20150619
  2. VALTREX [Concomitant]
     Active Substance: VALACYCLOVIR HYDROCHLORIDE
     Indication: PROPHYLAXIS
  3. MABCAMPATH [Suspect]
     Active Substance: ALEMTUZUMAB
     Indication: PROLYMPHOCYTIC LEUKAEMIA
     Route: 042
     Dates: start: 20150413, end: 20150413
  4. SOMAC [Concomitant]
     Active Substance: PANTOPRAZOLE SODIUM
     Dates: start: 201504
  5. BACTRIM [Concomitant]
     Active Substance: SULFAMETHOXAZOLE\TRIMETHOPRIM
     Indication: PROPHYLAXIS
  6. ENALAPRIL [Concomitant]
     Active Substance: ENALAPRIL
     Indication: HYPERTENSION
     Dates: start: 201504
  7. MABCAMPATH [Suspect]
     Active Substance: ALEMTUZUMAB
     Indication: PROLYMPHOCYTIC LEUKAEMIA
     Route: 042
     Dates: start: 20150415, end: 20150415
  8. ALLOPURINOL. [Concomitant]
     Active Substance: ALLOPURINOL
     Dates: start: 201504

REACTIONS (7)
  - Drug ineffective [Unknown]
  - Weight increased [Recovering/Resolving]
  - Malignant ascites [Recovering/Resolving]
  - Dyspnoea [Recovering/Resolving]
  - Listless [Recovering/Resolving]
  - Decreased appetite [Recovering/Resolving]
  - Blood lactate dehydrogenase increased [Recovering/Resolving]

NARRATIVE: CASE EVENT DATE: 2015
